FAERS Safety Report 11333141 (Version 1)
Quarter: 2015Q3

REPORT INFORMATION
  Report Type: Spontaneous
  Country: US (occurrence: US)
  Receive Date: 20150803
  Receipt Date: 20150803
  Transmission Date: 20151125
  Serious: Yes (Hospitalization, Other)
  Sender: FDA-Public Use
  Company Number: US-ELI_LILLY_AND_COMPANY-US200708004627

PATIENT
  Age: 35 Year
  Sex: Male

DRUGS (4)
  1. SEROQUEL [Concomitant]
     Active Substance: QUETIAPINE FUMARATE
  2. ZYPREXA [Suspect]
     Active Substance: OLANZAPINE
     Dosage: 15 MG, UNK
     Dates: end: 2005
  3. RISPERIDONE. [Concomitant]
     Active Substance: RISPERIDONE
  4. ZYPREXA [Suspect]
     Active Substance: OLANZAPINE
     Indication: BIPOLAR DISORDER
     Dosage: 20 MG, UNK
     Dates: start: 200209

REACTIONS (7)
  - Blood pressure decreased [Unknown]
  - Injury [Unknown]
  - Road traffic accident [Unknown]
  - Heart rate increased [Unknown]
  - Loss of consciousness [Unknown]
  - Loss of consciousness [Unknown]
  - Weight increased [Unknown]

NARRATIVE: CASE EVENT DATE: 20050810
